FAERS Safety Report 25178559 (Version 2)
Quarter: 2025Q3

REPORT INFORMATION
  Report Type: Report from Study
  Country: KR (occurrence: KR)
  Receive Date: 20250409
  Receipt Date: 20250810
  Transmission Date: 20251021
  Serious: Yes (Other)
  Sender: ALEXION PHARMACEUTICALS
  Company Number: KR-AstraZeneca-CH-00843283A

PATIENT
  Sex: Female

DRUGS (1)
  1. SELUMETINIB [Suspect]
     Active Substance: SELUMETINIB
     Route: 065

REACTIONS (5)
  - Suicidal ideation [Unknown]
  - Dermatitis acneiform [Unknown]
  - Rash [Unknown]
  - Seborrhoeic dermatitis [Unknown]
  - Dyspnoea [Unknown]
